FAERS Safety Report 15790281 (Version 1)
Quarter: 2019Q1

REPORT INFORMATION
  Report Type: Spontaneous
  Country: DE (occurrence: DE)
  Receive Date: 20190104
  Receipt Date: 20190104
  Transmission Date: 20190417
  Serious: Yes (Other)
  Sender: FDA-Public Use
  Company Number: PHHY2019DE000869

PATIENT
  Age: 58 Year
  Sex: Female

DRUGS (2)
  1. RISPERIDON HEXAL [Suspect]
     Active Substance: RISPERIDONE
     Indication: PSYCHOTIC DISORDER
     Dosage: 1.5 MG, QD
     Route: 065
  2. RISPERIDON HEXAL [Suspect]
     Active Substance: RISPERIDONE
     Dosage: 1.25 MG, QD
     Route: 065

REACTIONS (4)
  - Mental impairment [Unknown]
  - Disturbance in attention [Not Recovered/Not Resolved]
  - Feeling abnormal [Not Recovered/Not Resolved]
  - Confusional state [Not Recovered/Not Resolved]
